FAERS Safety Report 7653580-7 (Version None)
Quarter: 2011Q3

REPORT INFORMATION
  Report Type: 
  Country: None (occurrence: None)
  Receive Date: 20110802
  Receipt Date: 20110802
  Transmission Date: 20111222
  Serious: Yes (Life-Threatening, Hospitalization)
  Sender: FDA-Public Use
  Company Number: None

PATIENT
  Sex: Female
  Weight: 43.5453 kg

DRUGS (1)
  1. CEFTRIAXONE [Suspect]
     Indication: LYME DISEASE
     Dosage: 2 GM QD IV
     Route: 042
     Dates: start: 20101201, end: 20101231

REACTIONS (11)
  - HEADACHE [None]
  - HYPERTENSION [None]
  - VISION BLURRED [None]
  - AMNESIA [None]
  - DECREASED APPETITE [None]
  - COGNITIVE DISORDER [None]
  - CONFUSIONAL STATE [None]
  - CONVULSION [None]
  - MONOPLEGIA [None]
  - MENTAL STATUS CHANGES [None]
  - COMA [None]
